FAERS Safety Report 9701913 (Version 1)
Quarter: 2013Q4

REPORT INFORMATION
  Report Type: Spontaneous
  Country: US (occurrence: None)
  Receive Date: 20131120
  Receipt Date: 20131120
  Transmission Date: 20140711
  Serious: No
  Sender: FDA-Public Use
  Company Number: None

PATIENT
  Sex: Female

DRUGS (2)
  1. PANTOPRAZOLE [Suspect]
     Indication: HYPERCHLORHYDRIA
     Route: 048
  2. PANTOPRAZOLE [Suspect]
     Indication: DYSPEPSIA
     Route: 048

REACTIONS (2)
  - Drug effect decreased [None]
  - Product substitution issue [None]
